FAERS Safety Report 6430930-0 (Version None)
Quarter: 2009Q4

REPORT INFORMATION
  Report Type: 
  Country: None (occurrence: None)
  Receive Date: 20091106
  Receipt Date: 20091030
  Transmission Date: 20100525
  Serious: Yes (Hospitalization)
  Sender: FDA-Public Use
  Company Number: JP-AVENTIS-200912882JP

PATIENT
  Age: 59 Year
  Sex: Male
  Weight: 50 kg

DRUGS (12)
  1. TAXOTERE [Suspect]
     Indication: NON-SMALL CELL LUNG CANCER
     Route: 041
     Dates: start: 20090601, end: 20090601
  2. DECADRON [Concomitant]
     Route: 041
     Dates: start: 20080619
  3. CHLOR-TRIMETON [Concomitant]
     Route: 041
     Dates: start: 20080619, end: 20090601
  4. PRIMPERAN                          /00041901/ [Concomitant]
     Route: 041
     Dates: start: 20090601, end: 20090601
  5. GASTER [Concomitant]
     Route: 041
     Dates: start: 20080619
  6. KYTRIL [Concomitant]
     Route: 041
     Dates: start: 20090601, end: 20090601
  7. NAIXAN                             /00256201/ [Concomitant]
     Route: 048
     Dates: start: 20090520
  8. DIMEMORFAN PHOSPHATE [Concomitant]
     Route: 048
     Dates: start: 20050509
  9. MUCOSTA [Concomitant]
     Indication: PROPHYLAXIS
     Route: 048
     Dates: start: 20080314
  10. CARBOPLATIN [Concomitant]
     Dates: start: 20080619, end: 20090409
  11. PACLITAXEL [Concomitant]
     Dates: start: 20080619, end: 20090423
  12. NAVELBINE [Concomitant]
     Dates: start: 20090511, end: 20090908

REACTIONS (1)
  - DERMATOMYOSITIS [None]
